FAERS Safety Report 20198741 (Version 1)
Quarter: 2021Q4

REPORT INFORMATION
  Report Type: Report from Study
  Country: FR (occurrence: FR)
  Receive Date: 20211217
  Receipt Date: 20211217
  Transmission Date: 20220303
  Serious: Yes (Hospitalization, Other)
  Sender: FDA-Public Use
  Company Number: FR-SERVIER-S19006433

PATIENT

DRUGS (6)
  1. PEGASPARGASE [Suspect]
     Active Substance: PEGASPARGASE
     Indication: Acute lymphocytic leukaemia
     Dosage: 1125 IU, D8, D36
     Route: 042
     Dates: start: 20190225
  2. VINCRISTINE SULFATE [Suspect]
     Active Substance: VINCRISTINE SULFATE
     Indication: Acute lymphocytic leukaemia
     Dosage: 1.4 MG,  D1, D8, D29
     Route: 042
     Dates: start: 20190218
  3. DEXAMETHASONE PHOSPHATE [Suspect]
     Active Substance: DEXAMETHASONE PHOSPHATE
     Indication: Acute lymphocytic leukaemia
     Dosage: 5.4 MG, D1 TO D5, D29 TO D33
     Route: 048
     Dates: start: 20190218
  4. METHOTREXATE [Suspect]
     Active Substance: METHOTREXATE
     Indication: Acute lymphocytic leukaemia
     Dosage: 12.0 MG,  D2, D30
     Route: 037
     Dates: start: 20190219
  5. METHOTREXATE [Suspect]
     Active Substance: METHOTREXATE
     Dosage: 22.5 MG, D8, D15, D22
     Route: 048
     Dates: start: 20190225
  6. MERCAPTOPURINE [Suspect]
     Active Substance: MERCAPTOPURINE
     Indication: Acute lymphocytic leukaemia
     Dosage: 44 MG,  D1 TO D21, D29 TO D49
     Route: 048
     Dates: start: 20190218

REACTIONS (4)
  - Hypofibrinogenaemia [Recovered/Resolved]
  - Enteritis [Recovered/Resolved]
  - Hypertriglyceridaemia [Recovered/Resolved]
  - Hyperbilirubinaemia [Recovered/Resolved]

NARRATIVE: CASE EVENT DATE: 20190325
